FAERS Safety Report 26218201 (Version 1)
Quarter: 2025Q4

REPORT INFORMATION
  Report Type: Spontaneous
  Country: None (occurrence: EG)
  Receive Date: 20251231
  Receipt Date: 20251231
  Transmission Date: 20260118
  Serious: Yes (Hospitalization, Other)
  Sender: HIKMA
  Company Number: EG-HIKMA PHARMACEUTICALS USA INC.-EG-H14001-25-13872

PATIENT
  Age: 48 Year
  Sex: Female
  Weight: 89 kg

DRUGS (3)
  1. PACLITAXEL [Suspect]
     Active Substance: PACLITAXEL
     Indication: Breast cancer
     Dosage: 140 MILLIGRAM, WEEKLY
     Dates: start: 20250828
  2. PACLITAXEL [Suspect]
     Active Substance: PACLITAXEL
     Dosage: 140 MILLIGRAM, WEEKLY (WEEK SIX)
     Dates: start: 20251009
  3. PACLITAXEL [Suspect]
     Active Substance: PACLITAXEL
     Dosage: 140 MILLIGRAM, WEEKLY (WEEK EIGHT)
     Dates: start: 20251023

REACTIONS (2)
  - Herpes zoster [Recovered/Resolved with Sequelae]
  - Neuropathy peripheral [Not Recovered/Not Resolved]

NARRATIVE: CASE EVENT DATE: 20251009
